FAERS Safety Report 19263143 (Version 1)
Quarter: 2021Q2

REPORT INFORMATION
  Report Type: Spontaneous
  Country: GB (occurrence: GB)
  Receive Date: 20210517
  Receipt Date: 20210517
  Transmission Date: 20210717
  Serious: No
  Sender: FDA-Public Use
  Company Number: GB-ALKEM LABORATORIES LIMITED-GB-ALKEM-2021-02037

PATIENT

DRUGS (1)
  1. PREGABALIN. [Suspect]
     Active Substance: PREGABALIN
     Indication: PRODUCT USED FOR UNKNOWN INDICATION
     Dosage: 150 MILLIGRAM, BID
     Route: 048

REACTIONS (5)
  - Malaise [Unknown]
  - Pain [Unknown]
  - Dizziness [Unknown]
  - Product substitution issue [Unknown]
  - Headache [Unknown]

NARRATIVE: CASE EVENT DATE: 202010
